FAERS Safety Report 8866139 (Version 1)
Quarter: 2012Q4

REPORT INFORMATION
  Report Type: Report from Study
  Country: US (occurrence: US)
  Receive Date: 20121025
  Receipt Date: 20121025
  Transmission Date: 20130627
  Serious: Yes (Other)
  Sender: FDA-Public Use
  Company Number: US-ROCHE-1148418

PATIENT
  Sex: Female

DRUGS (4)
  1. RANIBIZUMAB [Suspect]
     Indication: AGE-RELATED MACULAR DEGENERATION
     Route: 050
     Dates: start: 20110302, end: 20110420
  2. BEVACIZUMAB [Suspect]
     Indication: AGE-RELATED MACULAR DEGENERATION
     Route: 050
     Dates: start: 2011
  3. BEVACIZUMAB [Suspect]
     Indication: OFF LABEL USE
  4. LASIX [Concomitant]
     Indication: AGE-RELATED MACULAR DEGENERATION
     Route: 048

REACTIONS (1)
  - Cataract [Unknown]
